FAERS Safety Report 12406781 (Version 1)
Quarter: 2016Q2

REPORT INFORMATION
  Report Type: Spontaneous
  Country: US (occurrence: None)
  Receive Date: 20160525
  Receipt Date: 20160525
  Transmission Date: 20160815
  Serious: Yes (Other)
  Sender: FDA-Public Use
  Company Number: None

PATIENT
  Sex: Female

DRUGS (3)
  1. NEUTROGENA ULTRA GENTLE HYDRATING CLEANSER CREAMY FORMULA [Suspect]
     Active Substance: COSMETICS
     Route: 061
  2. NEUTROGENA OIL FREE MOISTURE BROAD SPECTRUM SPF15 [Suspect]
     Active Substance: AVOBENZONE\OCTISALATE\OCTOCRYLENE\OXYBENZONE
     Route: 061
  3. NEUTROGENA PORE REFINING TONER [Suspect]
     Active Substance: SALICYLIC ACID
     Route: 061

REACTIONS (2)
  - Disease complication [None]
  - Glaucoma [None]
